FAERS Safety Report 4439194-0 (Version None)
Quarter: 2004Q3

REPORT INFORMATION
  Report Type: 
  Country: None (occurrence: None)
  Receive Date: 20040831
  Receipt Date: 20040819
  Transmission Date: 20050211
  Serious: Yes (Other)
  Sender: FDA-Public Use
  Company Number: CEL-2004-01604-ROC

PATIENT
  Age: 17 Year
  Sex: Male

DRUGS (1)
  1. METADATE CD [Suspect]
     Dates: start: 20010101

REACTIONS (3)
  - BLINDNESS [None]
  - MACULOPATHY [None]
  - RETINAL DISORDER [None]
